FAERS Safety Report 17583639 (Version 1)
Quarter: 2020Q1

REPORT INFORMATION
  Report Type: Spontaneous
  Country: AR (occurrence: AR)
  Receive Date: 20200326
  Receipt Date: 20200326
  Transmission Date: 20200409
  Serious: Yes (Other)
  Sender: FDA-Public Use
  Company Number: AR-AMGEN-ARGSP2020048272

PATIENT
  Age: 57 Year
  Sex: Female

DRUGS (1)
  1. ENBREL [Suspect]
     Active Substance: ETANERCEPT
     Indication: RHEUMATOID ARTHRITIS
     Dosage: 50 MILLIGRAM, QWK
     Route: 065
     Dates: start: 20070629

REACTIONS (11)
  - Joint noise [Not Recovered/Not Resolved]
  - Visual impairment [Not Recovered/Not Resolved]
  - Catarrh [Not Recovered/Not Resolved]
  - Pneumonia [Not Recovered/Not Resolved]
  - Gait inability [Not Recovered/Not Resolved]
  - Gait disturbance [Not Recovered/Not Resolved]
  - Joint effusion [Not Recovered/Not Resolved]
  - Fall [Not Recovered/Not Resolved]
  - Arthropathy [Not Recovered/Not Resolved]
  - Pulmonary mass [Not Recovered/Not Resolved]
  - Mobility decreased [Not Recovered/Not Resolved]

NARRATIVE: CASE EVENT DATE: 20070629
